FAERS Safety Report 16484998 (Version 1)
Quarter: 2019Q2

REPORT INFORMATION
  Report Type: Spontaneous
  Country: US (occurrence: US)
  Receive Date: 20190516
  Receipt Date: 20190516
  Transmission Date: 20190711
  Serious: Yes (Life-Threatening, Hospitalization)
  Sender: FDA-Public Use
  Company Number: None

PATIENT
  Age: 70 Year
  Sex: Male
  Weight: 112 kg

DRUGS (1)
  1. CETUXIMAB. [Suspect]
     Active Substance: CETUXIMAB
     Indication: SALIVARY GLAND CANCER
     Route: 042
     Dates: start: 20190430, end: 20190515

REACTIONS (6)
  - Throat irritation [None]
  - Pharyngeal swelling [None]
  - Oxygen saturation decreased [None]
  - Respiratory depression [None]
  - Speech disorder [None]
  - Increased upper airway secretion [None]

NARRATIVE: CASE EVENT DATE: 20190515
